FAERS Safety Report 23632989 (Version 1)
Quarter: 2024Q1

REPORT INFORMATION
  Report Type: Spontaneous
  Country: CA (occurrence: CA)
  Receive Date: 20240314
  Receipt Date: 20240314
  Transmission Date: 20240410
  Serious: Yes (Other)
  Sender: FDA-Public Use
  Company Number: CA-FreseniusKabi-FK202404166

PATIENT

DRUGS (5)
  1. ROPIVACAINE [Suspect]
     Active Substance: ROPIVACAINE
     Indication: Nerve block
     Dosage: ROPIVACAINE 0.5 PERCENT INJECTION ?THE ESP CATHETER WAS MAINTAINED WITH AN INFUSION OF ROPIVACAINE 0
     Route: 040
  2. FENTANYL [Concomitant]
     Active Substance: FENTANYL\FENTANYL CITRATE
     Indication: Analgesic therapy
  3. FENTANYL [Concomitant]
     Active Substance: FENTANYL\FENTANYL CITRATE
  4. EPINEPHRINE [Concomitant]
     Active Substance: EPINEPHRINE
     Indication: Nerve block
     Route: 040
  5. PREGABALIN [Concomitant]
     Active Substance: PREGABALIN
     Indication: Analgesic therapy

REACTIONS (1)
  - Respiratory failure [Recovering/Resolving]
